FAERS Safety Report 9890279 (Version 2)
Quarter: 2014Q1

REPORT INFORMATION
  Report Type: Spontaneous
  Country: US (occurrence: US)
  Receive Date: 20140212
  Receipt Date: 20140305
  Transmission Date: 20141002
  Serious: Yes (Hospitalization)
  Sender: FDA-Public Use
  Company Number: US-AMGEN-USASP2014008944

PATIENT
  Age: 58 Year
  Sex: Female

DRUGS (6)
  1. PROLIA [Suspect]
     Indication: OSTEOPOROSIS
     Dosage: UNK
     Route: 065
  2. PERCOCET                           /00446701/ [Concomitant]
  3. MORPHINE                           /00036302/ [Concomitant]
     Dosage: 15 MG, TID
  4. GABAPENTIN [Concomitant]
  5. CALCIUM [Concomitant]
     Dosage: 1200 MG, QD
     Route: 065
  6. VITAMIN D                          /00107901/ [Concomitant]
     Dosage: 2000 UNK, QD

REACTIONS (3)
  - Chest pain [Unknown]
  - Muscle spasms [Unknown]
  - Back pain [Unknown]
